FAERS Safety Report 7182226-X (Version None)
Quarter: 2010Q4

REPORT INFORMATION
  Report Type: 
  Country: None (occurrence: None)
  Receive Date: 20101221
  Receipt Date: 20100510
  Transmission Date: 20110411
  Serious: No
  Sender: FDA-Public Use
  Company Number: US-AMGEN-TCS411219

PATIENT

DRUGS (4)
  1. ENBREL [Suspect]
     Indication: PSORIASIS
     Dosage: 50 MG, 2 TIMES/WK
     Dates: start: 20091202, end: 20100331
  2. LEVOTHYROXINE SODIUM [Concomitant]
     Dosage: UNK UNK, UNK
  3. METOPROLOL TARTRATE [Concomitant]
     Dosage: UNK UNK, UNK
  4. DULOXETIME HYDROCHLORIDE [Concomitant]
     Dosage: UNK UNK, UNK

REACTIONS (1)
  - ACTIVATED PARTIAL THROMBOPLASTIN TIME ABNORMAL [None]
